FAERS Safety Report 21925521 (Version 2)
Quarter: 2023Q1

REPORT INFORMATION
  Report Type: Report from Study
  Country: US (occurrence: US)
  Receive Date: 20230130
  Receipt Date: 20230320
  Transmission Date: 20230418
  Serious: Yes (Death, Hospitalization, Other)
  Sender: FDA-Public Use
  Company Number: US-ARGENX-2023-ARGX-US000242

PATIENT

DRUGS (1)
  1. VYVGART [Suspect]
     Active Substance: EFGARTIGIMOD ALFA-FCAB
     Indication: Myasthenia gravis
     Dosage: UNK
     Route: 042
     Dates: start: 20221208, end: 20221214

REACTIONS (6)
  - Death [Fatal]
  - Urinary tract infection [Unknown]
  - Sepsis [Unknown]
  - Atrial fibrillation [Unknown]
  - Herpes zoster [Unknown]
  - Skin wound [Unknown]
